FAERS Safety Report 9553924 (Version 1)
Quarter: 2013Q3

REPORT INFORMATION
  Report Type: Spontaneous
  Country: US (occurrence: None)
  Receive Date: 20130913
  Receipt Date: 20130913
  Transmission Date: 20140515
  Serious: No
  Sender: FDA-Public Use
  Company Number: 1000045943

PATIENT
  Age: 83 Year
  Sex: Male

DRUGS (16)
  1. DALIRESP [Suspect]
     Indication: CHRONIC OBSTRUCTIVE PULMONARY DISEASE
     Dosage: 500MCG (500 MCG, 1 IN 1 D), ORAL
     Route: 048
     Dates: start: 20130522, end: 20130610
  2. JALYN (DUTAS0T) (DUTAS-T) [Concomitant]
  3. MAXAIR (PIRBUTEROL ACETATE) (PIRBUTEROL ACETATE) [Concomitant]
  4. ALBUTEROL SULFATE (SALBUTAMOL SULFATE) (SALBUTAMOL SULFATE) [Concomitant]
  5. SPIRIVA (TIOTROPIUM BROMIDE) (TIOTROPIUM BROMIDE) [Concomitant]
  6. ADVAIR (SERETIDE) (SERETIDE) [Concomitant]
  7. ASTELIN (AZELASTINE) (AZELASTINE) [Concomitant]
  8. SINGULAIR (MONTELUKAST SODIUM) (MONTELUKAST SODIUM) [Concomitant]
  9. PANGTOPRAZOLE (PANTOPRAZOLE) (PANTOPRAZOLE) [Concomitant]
  10. LOVASTATIN (LOVASTATIN) (LOVASTATIN) [Concomitant]
  11. FUROSEMIDE [Concomitant]
  12. POTASSIUM (POTASSIUM) (POTASSIUM) [Concomitant]
  13. LYRICA (PREGABALIN) (PREGABALIN) [Concomitant]
  14. FLECAINIDE (FLECAINIDE) (FLECAINIDE) [Concomitant]
  15. PRADAXA (DABIGATRAN ETEXILATE MESILATE) (DABIGATRAN ETEXILATE MESILATE) [Concomitant]
  16. PREDNISONE (PREDNISONE) (PREDNISONE) [Concomitant]

REACTIONS (2)
  - Increased upper airway secretion [None]
  - Flatulence [None]
